FAERS Safety Report 25419635 (Version 1)
Quarter: 2025Q2

REPORT INFORMATION
  Report Type: Spontaneous
  Country: BR (occurrence: BR)
  Receive Date: 20250610
  Receipt Date: 20250610
  Transmission Date: 20250716
  Serious: Yes (Death, Other)
  Sender: GILEAD
  Company Number: BR-GILEAD-2025-0715814

PATIENT
  Sex: Male

DRUGS (1)
  1. YESCARTA [Suspect]
     Active Substance: AXICABTAGENE CILOLEUCEL
     Indication: Product used for unknown indication
     Route: 065
     Dates: start: 202505, end: 202505

REACTIONS (6)
  - Angiopathy [Fatal]
  - Cytokine release syndrome [Recovered/Resolved]
  - Atrial fibrillation [Unknown]
  - Immune effector cell-associated neurotoxicity syndrome [Unknown]
  - Intestinal haemorrhage [Unknown]
  - Gastrointestinal necrosis [Unknown]
